FAERS Safety Report 13676635 (Version 1)
Quarter: 2017Q2

REPORT INFORMATION
  Report Type: Spontaneous
  Country: US (occurrence: US)
  Receive Date: 20170622
  Receipt Date: 20170622
  Transmission Date: 20170830
  Serious: No
  Sender: FDA-Public Use
  Company Number: US-PFIZER INC-2017266714

PATIENT
  Age: 53 Year
  Sex: Female
  Weight: 90.72 kg

DRUGS (2)
  1. EMBEDA [Suspect]
     Active Substance: MORPHINE SULFATE\NALTREXONE HYDROCHLORIDE
     Dosage: UNK
  2. OXYCODONE [Concomitant]
     Active Substance: OXYCODONE
     Indication: BREAKTHROUGH PAIN
     Dosage: 10 MG, AS NEEDED, (10MG THREE TIMES A DAY )

REACTIONS (5)
  - Nausea [Unknown]
  - Pain [Unknown]
  - Feeling abnormal [Unknown]
  - Headache [Unknown]
  - Migraine [Unknown]
